FAERS Safety Report 9742103 (Version 3)
Quarter: 2014Q4

REPORT INFORMATION
  Report Type: Spontaneous
  Country: US (occurrence: US)
  Receive Date: 20131210
  Receipt Date: 20141008
  Transmission Date: 20150529
  Serious: Yes (Other)
  Sender: FDA-Public Use
  Company Number: US-BAYER-2013-148610

PATIENT
  Age: 27 Year
  Sex: Female
  Weight: 72.56 kg

DRUGS (1)
  1. MIRENA [Suspect]
     Active Substance: LEVONORGESTREL
     Indication: CONTRACEPTION
     Dosage: 20 MCG/24HR, CONT
     Route: 015
     Dates: start: 20111102, end: 20111122

REACTIONS (12)
  - Abdominal pain lower [None]
  - Uterine perforation [None]
  - Anxiety [None]
  - Device issue [None]
  - Pelvic pain [None]
  - Injury [None]
  - Internal injury [None]
  - Fear [None]
  - Genital haemorrhage [None]
  - Medical device discomfort [None]
  - Emotional distress [None]
  - Depression [None]

NARRATIVE: CASE EVENT DATE: 201111
